FAERS Safety Report 9350483 (Version 3)
Quarter: 2014Q2

REPORT INFORMATION
  Report Type: Spontaneous
  Country: US (occurrence: US)
  Receive Date: 20130617
  Receipt Date: 20140521
  Transmission Date: 20141212
  Serious: Yes (Hospitalization, Disabling, Other)
  Sender: FDA-Public Use
  Company Number: US-ASTRAZENECA-2012SE36492

PATIENT
  Age: 22411 Day
  Sex: Female
  Weight: 81.6 kg

DRUGS (19)
  1. NEXIUM [Suspect]
     Indication: GASTROOESOPHAGEAL REFLUX DISEASE
     Dosage: ONE A DAY
     Route: 048
  2. NEXIUM [Suspect]
     Indication: ABDOMINAL DISCOMFORT
     Dosage: ONE A DAY
     Route: 048
  3. NEXIUM [Suspect]
     Indication: GASTROOESOPHAGEAL REFLUX DISEASE
     Route: 048
     Dates: start: 20061110
  4. NEXIUM [Suspect]
     Indication: ABDOMINAL DISCOMFORT
     Route: 048
     Dates: start: 20061110
  5. NEXIUM [Suspect]
     Indication: GASTROOESOPHAGEAL REFLUX DISEASE
     Route: 048
     Dates: start: 20130402
  6. NEXIUM [Suspect]
     Indication: ABDOMINAL DISCOMFORT
     Route: 048
     Dates: start: 20130402
  7. TUMS [Concomitant]
  8. ALKA-SELTZER [Concomitant]
  9. CALCIUM-D [Concomitant]
  10. VITAMIN C [Concomitant]
  11. ASPIRIN [Concomitant]
  12. VITAMIN B50 [Concomitant]
  13. POTASSIUM CHLORIDE [Concomitant]
  14. LORATADINE [Concomitant]
  15. EXFORGE [Concomitant]
  16. DIOVAN [Concomitant]
     Dates: start: 20070212
  17. MOBIC [Concomitant]
     Dates: start: 20040707
  18. LOTREL [Concomitant]
     Dosage: 5/10 MG
     Dates: start: 20040531
  19. METHYLPREDNISOLONE [Concomitant]
     Dates: start: 20070502

REACTIONS (10)
  - Lower limb fracture [Unknown]
  - Hip fracture [Unknown]
  - Muscular weakness [Unknown]
  - Osteoporosis [Unknown]
  - Multiple fractures [Unknown]
  - Carpal tunnel syndrome [Unknown]
  - Dysstasia [Unknown]
  - Ankle fracture [Unknown]
  - Balance disorder [Unknown]
  - Traumatic arthropathy [Unknown]
